FAERS Safety Report 8967690 (Version 1)
Quarter: 2012Q4

REPORT INFORMATION
  Report Type: Spontaneous
  Country: US (occurrence: None)
  Receive Date: 20121206
  Receipt Date: 20121206
  Transmission Date: 20130627
  Serious: Yes (Other)
  Sender: FDA-Public Use
  Company Number: ACO_33124_2012

PATIENT
  Age: 53 Year
  Sex: Male
  Weight: 83.9 kg

DRUGS (7)
  1. AMPYRA (DALFAMPRIDINE) TABLET, 10MG [Suspect]
     Indication: MULTIPLE SCLEROSIS
     Route: 048
     Dates: start: 20121117, end: 20121124
  2. WARFARIN (WARFARIN) [Concomitant]
  3. TRICOR (FENOFIBRATE) [Concomitant]
  4. DIGOXIN (DIGOXIN) [Concomitant]
  5. FISH OIL (FISH OIL) [Concomitant]
  6. ASPIRIN (ACETYLSALICYLIC ACID) [Concomitant]
  7. BACLOFEN (BACLOFEN) [Concomitant]

REACTIONS (6)
  - Convulsion [None]
  - Unresponsive to stimuli [None]
  - Feeling abnormal [None]
  - Somnolence [None]
  - Vertigo [None]
  - Multiple sclerosis [None]
